FAERS Safety Report 16053776 (Version 2)
Quarter: 2019Q1

REPORT INFORMATION
  Report Type: Spontaneous
  Country: RU (occurrence: RU)
  Receive Date: 20190308
  Receipt Date: 20190308
  Transmission Date: 20190418
  Serious: Yes (Other)
  Sender: FDA-Public Use
  Company Number: PHHY2019RU047014

PATIENT
  Sex: Female

DRUGS (3)
  1. PREDNISOLONE. [Suspect]
     Active Substance: PREDNISOLONE
     Indication: SARCOIDOSIS
     Dosage: DECREASE TO 1 TABLET PER MONTH UP TO 15 MG DAILY
     Route: 048
  2. ALPHA-TOCOPHEROL, D- [Concomitant]
     Indication: SARCOIDOSIS
     Route: 065
  3. PREDNISOLONE. [Suspect]
     Active Substance: PREDNISOLONE
     Dosage: 30 MG, QD
     Route: 048
     Dates: start: 2005

REACTIONS (5)
  - Weight increased [Unknown]
  - Leukopenia [Unknown]
  - Cushing^s syndrome [Unknown]
  - Duodenal ulcer [Not Recovered/Not Resolved]
  - Herpes zoster [Unknown]

NARRATIVE: CASE EVENT DATE: 2005
